FAERS Safety Report 24448228 (Version 1)
Quarter: 2024Q4

REPORT INFORMATION
  Report Type: Spontaneous
  Country: US (occurrence: US)
  Receive Date: 20241016
  Receipt Date: 20241016
  Transmission Date: 20250115
  Serious: Yes (Death, Other)
  Sender: MERCK
  Company Number: US-009507513-2410USA004926

PATIENT
  Sex: Female

DRUGS (1)
  1. WINREVAIR [Suspect]
     Active Substance: SOTATERCEPT-CSRK

REACTIONS (4)
  - Death [Fatal]
  - Cardiogenic shock [Unknown]
  - Haemorrhage [Unknown]
  - Illness [Unknown]
